FAERS Safety Report 5467082-X (Version None)
Quarter: 2007Q3

REPORT INFORMATION
  Report Type: 
  Country: None (occurrence: None)
  Receive Date: 20070921
  Receipt Date: 20070921
  Transmission Date: 20080115
  Serious: Yes (Hospitalization)
  Sender: FDA-Public Use
  Company Number: None

PATIENT
  Sex: Female
  Weight: 74.8 kg

DRUGS (3)
  1. CISPLATIN [Suspect]
     Dosage: 92 MG
  2. DOXORUBICIN HYDROCHLORIDE [Suspect]
     Dosage: 83 MG
  3. TAXOL [Suspect]
     Dosage: 290 MG

REACTIONS (7)
  - ANAEMIA [None]
  - ASTHENIA [None]
  - CULTURE URINE POSITIVE [None]
  - ESCHERICHIA INFECTION [None]
  - HAEMORRHAGE [None]
  - HYPOVOLAEMIC SHOCK [None]
  - TACHYCARDIA [None]
